FAERS Safety Report 10381137 (Version 1)
Quarter: 2014Q3

REPORT INFORMATION
  Report Type: Spontaneous
  Country: US (occurrence: US)
  Receive Date: 20140813
  Receipt Date: 20140813
  Transmission Date: 20150326
  Serious: Yes (Hospitalization, Other)
  Sender: FDA-Public Use
  Company Number: US-009507513-1408USA001606

PATIENT
  Sex: Female

DRUGS (2)
  1. NUVARING [Suspect]
     Active Substance: ETHINYL ESTRADIOL\ETONOGESTREL
     Indication: CONTRACEPTION
     Dosage: INSERT RING X 3WKS,REMOVE X 1WK
     Route: 067
     Dates: start: 20130427, end: 20131016
  2. HORMONAL CONTRACEPTIVES (UNSPECIFIED) [Concomitant]
     Active Substance: UNSPECIFIED INGREDIENT
     Indication: CONTRACEPTION
     Dosage: UNK
     Route: 048
     Dates: start: 2009, end: 20131013

REACTIONS (6)
  - Liver function test abnormal [Unknown]
  - Pulmonary infarction [Unknown]
  - Pleural effusion [Unknown]
  - Anxiety [Unknown]
  - Pulmonary embolism [Unknown]
  - Back pain [Unknown]

NARRATIVE: CASE EVENT DATE: 20130929
